FAERS Safety Report 7703323-3 (Version None)
Quarter: 2011Q3

REPORT INFORMATION
  Report Type: 
  Country: None (occurrence: None)
  Receive Date: 20110823
  Receipt Date: 20110811
  Transmission Date: 20111222
  Serious: Yes (Hospitalization)
  Sender: FDA-Public Use
  Company Number: FR-ELI_LILLY_AND_COMPANY-FR201105004964

PATIENT
  Age: 70 Year
  Sex: Female
  Weight: 75 kg

DRUGS (5)
  1. XANAX [Concomitant]
     Indication: ANXIETY
     Dosage: 0.25 MG, BID
     Route: 048
     Dates: start: 20060101
  2. DEPAKOTE [Concomitant]
     Indication: BIPOLAR DISORDER
     Dosage: 500 MG, TID
     Dates: start: 19980101
  3. NOCTRAN 10 [Concomitant]
     Indication: INSOMNIA
     Dosage: 10 MG, QD
     Route: 048
     Dates: start: 20010101
  4. REVIA [Concomitant]
     Indication: ALCOHOLISM
     Dosage: 1 DF, QD
     Route: 048
     Dates: start: 20080101
  5. CYMBALTA [Suspect]
     Indication: DEPRESSION
     Dosage: 120 MG, QD
     Route: 048
     Dates: start: 20100601

REACTIONS (1)
  - MEMORY IMPAIRMENT [None]
